FAERS Safety Report 14362464 (Version 1)
Quarter: 2018Q1

REPORT INFORMATION
  Report Type: Spontaneous
  Country: US (occurrence: US)
  Receive Date: 20180105
  Receipt Date: 20180105
  Transmission Date: 20180509
  Serious: Yes (Death)
  Sender: FDA-Public Use
  Company Number: None

PATIENT
  Age: 78 Year
  Sex: Female

DRUGS (9)
  1. PROCRIT [Suspect]
     Active Substance: ERYTHROPOIETIN
     Indication: CHRONIC KIDNEY DISEASE
     Route: 058
     Dates: start: 20161227, end: 20171224
  2. ACYCLOVIR. [Concomitant]
     Active Substance: ACYCLOVIR
  3. ALLOPURINOL. [Concomitant]
     Active Substance: ALLOPURINOL
  4. FOLIC ACID. [Concomitant]
     Active Substance: FOLIC ACID
  5. SYNTHROID [Concomitant]
     Active Substance: LEVOTHYROXINE SODIUM
  6. PANTOPRAZOLE [Concomitant]
     Active Substance: PANTOPRAZOLE
  7. GABAPENTIN. [Concomitant]
     Active Substance: GABAPENTIN
  8. PROCRIT [Suspect]
     Active Substance: ERYTHROPOIETIN
  9. CLARITIN [Concomitant]
     Active Substance: LORATADINE

REACTIONS (1)
  - Death [None]

NARRATIVE: CASE EVENT DATE: 20171224
